FAERS Safety Report 8181788-3 (Version None)
Quarter: 2012Q1

REPORT INFORMATION
  Report Type: 
  Country: None (occurrence: None)
  Receive Date: 20120302
  Receipt Date: 20111027
  Transmission Date: 20120608
  Serious: Yes (Other)
  Sender: FDA-Public Use
  Company Number: US-AMGEN-USASP2011055698

PATIENT
  Sex: Female
  Weight: 58.5 kg

DRUGS (8)
  1. PREDNISONE TAB [Concomitant]
     Indication: IDIOPATHIC THROMBOCYTOPENIC PURPURA
     Dosage: UNK UNK, PRN
  2. ACTONEL [Concomitant]
  3. SINGULAIR [Concomitant]
  4. CITRICAL                           /00108001/ [Concomitant]
  5. NPLATE [Suspect]
     Indication: IDIOPATHIC THROMBOCYTOPENIC PURPURA
     Dates: start: 20110817
  6. ZANTAC [Concomitant]
  7. VITAMIN B COMPLEX                  /00003501/ [Concomitant]
  8. FOLIC ACID [Concomitant]

REACTIONS (1)
  - DRUG INEFFECTIVE [None]
